FAERS Safety Report 19675490 (Version 1)
Quarter: 2021Q3

REPORT INFORMATION
  Report Type: Report from Study
  Country: DE (occurrence: DE)
  Receive Date: 20210809
  Receipt Date: 20210809
  Transmission Date: 20211014
  Serious: Yes (Death, Hospitalization, Other)
  Sender: FDA-Public Use
  Company Number: DE-MYLANLABS-2020M1070701

PATIENT
  Age: 55 Year
  Sex: Female
  Weight: 81.3 kg

DRUGS (23)
  1. BORTEZOMIB. [Suspect]
     Active Substance: BORTEZOMIB
     Indication: PLASMA CELL MYELOMA
     Dosage: D1 + D4
     Dates: start: 20200423, end: 20200426
  2. NEUPOGEN [Concomitant]
     Active Substance: FILGRASTIM
     Dosage: 48 MIU E
     Dates: start: 20200422, end: 20200423
  3. NEUPOGEN [Concomitant]
     Active Substance: FILGRASTIM
     Dosage: 30 MIU E
     Dates: start: 20200402, end: 20200404
  4. ETOPOSIDE. [Suspect]
     Active Substance: ETOPOSIDE
     Indication: PLASMA CELL MYELOMA
     Dosage: 40 MILLIGRAM/SQ. METER
     Dates: start: 20200423, end: 20200426
  5. ETOPOSIDE. [Suspect]
     Active Substance: ETOPOSIDE
     Dosage: UNK
     Dates: start: 20200423, end: 20200426
  6. CAELYX [Suspect]
     Active Substance: DOXORUBICIN HYDROCHLORIDE
     Indication: PLASMA CELL MYELOMA
     Dosage: 10 MILLIGRAM, QD
     Route: 065
     Dates: start: 20200423, end: 20200426
  7. COTRIMAZOL [Concomitant]
     Active Substance: SULFAMETHOXAZOLE\TRIMETHOPRIM
     Dosage: 960 MILLIGRAM, 3XW
     Route: 048
  8. THALIDOMIDE [Suspect]
     Active Substance: THALIDOMIDE
     Indication: PLASMA CELL MYELOMA
     Dosage: 100 MILLIGRAM DAILY
     Route: 048
     Dates: start: 20200423, end: 20200426
  9. NEUPOGEN [Concomitant]
     Active Substance: FILGRASTIM
     Dosage: 48 MIU E
     Dates: start: 20200422, end: 20200422
  10. NEUPOGEN [Concomitant]
     Active Substance: FILGRASTIM
     Dosage: UNK
  11. FLUDARABINE [Suspect]
     Active Substance: FLUDARABINE PHOSPHATE
     Indication: PLASMA CELL MYELOMA
     Dosage: 56.1 MILLIGRAM DAILY
     Route: 042
     Dates: start: 20181121, end: 20181123
  12. DEXAMETHASONE. [Suspect]
     Active Substance: DEXAMETHASONE
     Indication: PLASMA CELL MYELOMA
     Dosage: 40 MILLIGRAM DAILY
     Route: 065
     Dates: start: 20200423, end: 20200426
  13. CYCLOPHOSPHAMIDE. [Suspect]
     Active Substance: CYCLOPHOSPHAMIDE
     Dosage: 561 MILLIGRAM DAILY
     Route: 042
     Dates: start: 20181121, end: 20181123
  14. CYCLOPHOSPHAMIDE. [Suspect]
     Active Substance: CYCLOPHOSPHAMIDE
     Indication: PLASMA CELL MYELOMA
     Dosage: 400 MG/M2 DAILY
     Route: 042
     Dates: start: 20200423, end: 20200426
  15. CISPLATIN. [Suspect]
     Active Substance: CISPLATIN
     Indication: PLASMA CELL MYELOMA
     Dosage: 10 MG/M2 DAILY
     Route: 065
     Dates: start: 20200423, end: 20200426
  16. VELCADE [Suspect]
     Active Substance: BORTEZOMIB
     Indication: REFRACTORY CANCER
     Dosage: 1 MICROGRAM/SQ. METER
     Route: 065
     Dates: start: 20200423, end: 20200426
  17. NEUPOGEN [Concomitant]
     Active Substance: FILGRASTIM
     Dosage: 30 MIU E
     Dates: start: 20200423, end: 20200423
  18. DOXORUBICIN [Suspect]
     Active Substance: DOXORUBICIN
     Indication: PLASMA CELL MYELOMA
     Dosage: 10 MILLIGRAM DAILY
     Route: 065
     Dates: start: 20200423, end: 20200426
  19. VELCADE [Suspect]
     Active Substance: BORTEZOMIB
     Indication: PLASMA CELL MYELOMA RECURRENT
     Dosage: UNK
  20. POTASSIUM CHLORIDE. [Concomitant]
     Active Substance: POTASSIUM CHLORIDE
     Indication: HYPOKALAEMIA
     Dosage: UNK, QD
     Dates: start: 20200427, end: 20200427
  21. NEUPOGEN [Concomitant]
     Active Substance: FILGRASTIM
     Indication: PRODUCT USED FOR UNKNOWN INDICATION
     Dosage: 30 MIU E
     Dates: start: 20200317, end: 20200319
  22. COTRIMAZOL [Concomitant]
     Active Substance: SULFAMETHOXAZOLE\TRIMETHOPRIM
     Indication: INFECTION PROPHYLAXIS
     Dosage: 3 DOSAGE FORM, QW
     Route: 048
     Dates: start: 20060710, end: 20200424
  23. TRIMETHOPRIM. [Concomitant]
     Active Substance: TRIMETHOPRIM
     Indication: INFECTION PROPHYLAXIS
     Dosage: 960 MILLIGRAM, QW
     Route: 048
     Dates: start: 20060710, end: 20200424

REACTIONS (6)
  - Pneumonia [Fatal]
  - Respiratory failure [Fatal]
  - Pseudomonas infection [Fatal]
  - Multiple organ dysfunction syndrome [Fatal]
  - Septic shock [Fatal]
  - Off label use [Unknown]

NARRATIVE: CASE EVENT DATE: 20200427
